FAERS Safety Report 12046123 (Version 1)
Quarter: 2016Q1

REPORT INFORMATION
  Report Type: Spontaneous
  Country: JP (occurrence: JP)
  Receive Date: 20160209
  Receipt Date: 20160209
  Transmission Date: 20160526
  Serious: Yes (Life-Threatening, Hospitalization)
  Sender: FDA-Public Use
  Company Number: JP-009507513-1507JPN008873

PATIENT
  Age: 63 Year
  Sex: Female

DRUGS (21)
  1. EMEND [Interacting]
     Active Substance: APREPITANT
     Indication: PROPHYLAXIS OF NAUSEA AND VOMITING
     Dosage: 80 MG, QD
     Route: 048
     Dates: start: 20140701, end: 20140701
  2. EMEND [Interacting]
     Active Substance: APREPITANT
     Dosage: 80 MG, QD
     Route: 048
     Dates: start: 20150306, end: 20150306
  3. CISPLATIN. [Suspect]
     Active Substance: CISPLATIN
     Dosage: 80 UNK, QD
     Route: 041
     Dates: start: 2013, end: 201305
  4. CISPLATIN. [Suspect]
     Active Substance: CISPLATIN
     Dosage: 80 MG, QD
     Route: 041
     Dates: start: 201406, end: 20150315
  5. LOXONIN [Concomitant]
     Active Substance: LOXOPROFEN SODIUM
     Dosage: UNK
     Dates: start: 20140426, end: 20150515
  6. CISPLATIN. [Suspect]
     Active Substance: CISPLATIN
     Dosage: 80 UNK, QD
     Route: 041
     Dates: start: 2013, end: 2013
  7. WARFARIN [Interacting]
     Active Substance: WARFARIN
     Indication: VENOUS THROMBOSIS
     Dosage: 1 MG, QD
     Route: 048
     Dates: start: 20140626, end: 20140917
  8. EMEND [Interacting]
     Active Substance: APREPITANT
     Indication: PROPHYLAXIS OF NAUSEA AND VOMITING
     Dosage: 125 MG, QD
     Route: 048
     Dates: start: 20140630, end: 20140630
  9. CISPLATIN. [Suspect]
     Active Substance: CISPLATIN
     Dosage: 80 UNK, QD
     Route: 041
     Dates: start: 2013, end: 2013
  10. DECADRON [Concomitant]
     Active Substance: DEXAMETHASONE
     Dosage: UNK
     Dates: start: 20140701, end: 20150316
  11. CISPLATIN. [Suspect]
     Active Substance: CISPLATIN
     Indication: OVARIAN GERM CELL EMBRYONAL CARCINOMA STAGE III
     Dosage: 80 UNK, QD
     Route: 041
     Dates: start: 201302, end: 2013
  12. TOPOTECIN [Suspect]
     Active Substance: IRINOTECAN HYDROCHLORIDE
     Indication: OVARIAN CLEAR CELL CARCINOMA
     Dosage: 80 MG, QD
     Route: 041
     Dates: start: 201302, end: 2013
  13. TOPOTECIN [Suspect]
     Active Substance: IRINOTECAN HYDROCHLORIDE
     Dosage: 80 MG, QD
     Route: 041
     Dates: start: 2013, end: 2013
  14. TOPOTECIN [Suspect]
     Active Substance: IRINOTECAN HYDROCHLORIDE
     Dosage: 80 MG, QD
     Route: 041
     Dates: start: 2013, end: 201305
  15. FAMOTIDINE. [Concomitant]
     Active Substance: FAMOTIDINE
     Dosage: UNK
     Dates: start: 20140903, end: 20150917
  16. LIXIANA [Concomitant]
     Active Substance: EDOXABAN TOSILATE MONOHYDRATE
     Dosage: UNK
     Dates: start: 20141007, end: 20150924
  17. EMEND [Interacting]
     Active Substance: APREPITANT
     Dosage: 125 MG, QD
     Route: 048
     Dates: start: 20150305, end: 20150305
  18. TOPOTECIN [Suspect]
     Active Substance: IRINOTECAN HYDROCHLORIDE
     Dosage: 80 MG, QD
     Route: 041
     Dates: start: 201406, end: 20150305
  19. TOPOTECIN [Suspect]
     Active Substance: IRINOTECAN HYDROCHLORIDE
     Dosage: 80 MG, QD
     Route: 041
     Dates: start: 2013, end: 2013
  20. NAUZELIN [Concomitant]
     Active Substance: DOMPERIDONE
  21. PALONOSETRON HYDROCHLORIDE. [Concomitant]
     Active Substance: PALONOSETRON HYDROCHLORIDE
     Dosage: UNK
     Dates: start: 2014

REACTIONS (4)
  - Pulmonary embolism [Recovered/Resolved]
  - Venous thrombosis limb [Unknown]
  - Drug interaction [Unknown]
  - Prothrombin time ratio abnormal [Unknown]

NARRATIVE: CASE EVENT DATE: 20141014
